FAERS Safety Report 9657470 (Version 1)
Quarter: 2013Q4

REPORT INFORMATION
  Report Type: Spontaneous
  Country: US (occurrence: US)
  Receive Date: 20131030
  Receipt Date: 20131030
  Transmission Date: 20140711
  Serious: No
  Sender: FDA-Public Use
  Company Number: US-PURDUE-USA-2011-0078385

PATIENT
  Sex: Male

DRUGS (2)
  1. OXYCODONE HYDROCHLORIDE (SIMILAR TO NDA 20-553) [Suspect]
     Indication: PAIN
     Dosage: 180 MG, UNK
     Route: 048
     Dates: start: 2011
  2. ALLEGRA 24 HOUR [Concomitant]
     Indication: HYPERSENSITIVITY
     Dosage: SINGLE DOSE
     Dates: start: 2011

REACTIONS (1)
  - Constipation [Not Recovered/Not Resolved]
